FAERS Safety Report 4773931-0 (Version None)
Quarter: 2005Q3

REPORT INFORMATION
  Report Type: 
  Country: None (occurrence: None)
  Receive Date: 20050919
  Receipt Date: 20050909
  Transmission Date: 20060218
  Serious: Yes (Hospitalization)
  Sender: FDA-Public Use
  Company Number: KII-2005-0018566

PATIENT
  Age: 58 Year
  Sex: Male

DRUGS (6)
  1. OXYCONTIN [Suspect]
     Dosage: ORAL
     Route: 048
  2. ACETAMINOPHEN AND OXYCODONE HCL [Suspect]
     Dosage: ORAL
     Route: 048
  3. ADDERALL 10 [Suspect]
     Dosage: ORAL
     Route: 048
  4. CYCLOBENZAPRINE HCL [Suspect]
     Dosage: ORAL
     Route: 048
  5. PREDNISONE [Suspect]
     Dosage: ORAL
     Route: 048
  6. NSAID'S() [Suspect]

REACTIONS (6)
  - ABNORMAL BEHAVIOUR [None]
  - AGITATION [None]
  - HYPERTENSION [None]
  - LIVER FUNCTION TEST ABNORMAL [None]
  - SOMNOLENCE [None]
  - TACHYCARDIA [None]
